FAERS Safety Report 7133082-7 (Version None)
Quarter: 2010Q4

REPORT INFORMATION
  Report Type: 
  Country: None (occurrence: None)
  Receive Date: 20101202
  Receipt Date: 20101122
  Transmission Date: 20110411
  Serious: Yes (Life-Threatening)
  Sender: FDA-Public Use
  Company Number: B0685561A

PATIENT
  Sex: Female

DRUGS (7)
  1. ARIXTRA [Suspect]
     Dosage: 7.5MG PER DAY
     Route: 058
     Dates: start: 20100921, end: 20101004
  2. AMOXICILLIN [Concomitant]
     Indication: RESPIRATORY TRACT CONGESTION
     Dosage: 1G TWICE PER DAY
     Route: 065
     Dates: start: 20101004
  3. LERCANIDIPINE [Concomitant]
     Dosage: 10MG PER DAY
     Route: 065
     Dates: end: 20101005
  4. LEVOTHYROXINE SODIUM [Concomitant]
     Dosage: 50MCG PER DAY
     Route: 065
     Dates: end: 20101005
  5. FORLAX [Concomitant]
     Dosage: 10G PER DAY
     Route: 065
     Dates: end: 20101005
  6. HEMIGOXINE [Concomitant]
     Dosage: .125MG PER DAY
     Route: 065
     Dates: end: 20101005
  7. CARBOCISTEIN [Concomitant]
     Indication: RESPIRATORY TRACT CONGESTION
     Route: 065
     Dates: start: 20101004

REACTIONS (6)
  - HAEMATEMESIS [None]
  - HYPOTENSION [None]
  - MELAENA [None]
  - OVERDOSE [None]
  - OXYGEN SATURATION DECREASED [None]
  - THROMBOSIS [None]
